FAERS Safety Report 13334368 (Version 1)
Quarter: 2017Q1

REPORT INFORMATION
  Report Type: Report from Study
  Country: US (occurrence: US)
  Receive Date: 20170314
  Receipt Date: 20170314
  Transmission Date: 20170428
  Serious: Yes (Death)
  Sender: FDA-Public Use
  Company Number: US-ASTRAZENECA-2017SE25777

PATIENT
  Age: 9 Month
  Sex: Female

DRUGS (7)
  1. SYNAGIS [Suspect]
     Active Substance: PALIVIZUMAB
     Indication: PREMATURE BABY
     Route: 030
     Dates: start: 20161110, end: 20170308
  2. LEVOTHYROXINE. [Concomitant]
     Active Substance: LEVOTHYROXINE
  3. POLY-VI-SOL [Concomitant]
     Active Substance: VITAMINS
  4. LOVENOX [Concomitant]
     Active Substance: ENOXAPARIN SODIUM
  5. FUROSEMIDE. [Concomitant]
     Active Substance: FUROSEMIDE
  6. LEVOCARNITINE. [Concomitant]
     Active Substance: LEVOCARNITINE
  7. ENALAPRILAT. [Concomitant]
     Active Substance: ENALAPRILAT

REACTIONS (1)
  - Death [Fatal]
